FAERS Safety Report 9285992 (Version 1)
Quarter: 2013Q2

REPORT INFORMATION
  Report Type: Spontaneous
  Country: US (occurrence: US)
  Receive Date: 20130513
  Receipt Date: 20130513
  Transmission Date: 20140414
  Serious: Yes (Hospitalization, Other)
  Sender: FDA-Public Use
  Company Number: US-BAYER-2013-056796

PATIENT
  Age: 45 Year
  Sex: Female

DRUGS (2)
  1. SAFYRAL [Suspect]
  2. IRON [FERROUS SULFATE] [Concomitant]
     Indication: ANAEMIA

REACTIONS (3)
  - Deep vein thrombosis [Recovered/Resolved]
  - Pulmonary embolism [Not Recovered/Not Resolved]
  - Cholelithiasis [None]
